FAERS Safety Report 7388083-0 (Version None)
Quarter: 2011Q1

REPORT INFORMATION
  Report Type: 
  Country: None (occurrence: None)
  Receive Date: 20110324
  Receipt Date: 20110310
  Transmission Date: 20110831
  Serious: Yes (Life-Threatening)
  Sender: FDA-Public Use
  Company Number: 2011MA002425

PATIENT
  Age: 57 Year
  Sex: Female

DRUGS (2)
  1. FLUOROURACIL [Concomitant]
  2. IRINOTECAN HCL [Suspect]
     Indication: RECTAL CANCER
     Dosage: 350 MG, QD; IV
     Route: 042
     Dates: start: 20101209, end: 20101209

REACTIONS (1)
  - BRONCHOSPASM [None]
